FAERS Safety Report 7628693-6 (Version None)
Quarter: 2011Q3

REPORT INFORMATION
  Report Type: 
  Country: None (occurrence: None)
  Receive Date: 20110722
  Receipt Date: 20110713
  Transmission Date: 20111222
  Serious: Yes (Life-Threatening, Hospitalization)
  Sender: FDA-Public Use
  Company Number: FI-JNJFOC-20110706427

PATIENT
  Sex: Female

DRUGS (3)
  1. PREDNISOLONE [Concomitant]
     Dates: start: 20060101
  2. REMICADE [Suspect]
     Indication: COLITIS ULCERATIVE
     Route: 042
     Dates: start: 20110411
  3. REMICADE [Suspect]
     Dosage: 3RD INFUSION
     Route: 042
     Dates: start: 20110525

REACTIONS (2)
  - MENINGITIS [None]
  - LISTERIA SEPSIS [None]
